FAERS Safety Report 23697999 (Version 1)
Quarter: 2024Q2

REPORT INFORMATION
  Report Type: Spontaneous
  Country: US (occurrence: US)
  Receive Date: 20240402
  Receipt Date: 20240402
  Transmission Date: 20240716
  Serious: Yes (Other)
  Sender: FDA-Public Use
  Company Number: US-BRISTOL-MYERS SQUIBB COMPANY-2024-045446

PATIENT
  Age: 79 Year
  Sex: Male

DRUGS (5)
  1. LENALIDOMIDE [Suspect]
     Active Substance: LENALIDOMIDE
     Indication: Plasma cell myeloma
     Route: 048
  2. REVLIMID [Suspect]
     Active Substance: LENALIDOMIDE
     Indication: Product used for unknown indication
  3. REVLIMID [Suspect]
     Active Substance: LENALIDOMIDE
  4. ZOMETA [Suspect]
     Active Substance: ZOLEDRONIC ACID
     Indication: Product used for unknown indication
  5. ACRIVASTINE [Suspect]
     Active Substance: ACRIVASTINE
     Indication: Product used for unknown indication

REACTIONS (10)
  - Diarrhoea [Recovering/Resolving]
  - Nasopharyngitis [Not Recovered/Not Resolved]
  - Product dose omission issue [Unknown]
  - Vitamin D decreased [Recovering/Resolving]
  - Fatigue [Recovering/Resolving]
  - Constipation [Recovering/Resolving]
  - Lower respiratory tract infection [Recovering/Resolving]
  - Influenza [Recovering/Resolving]
  - Therapy interrupted [Unknown]
  - Somnolence [Recovering/Resolving]

NARRATIVE: CASE EVENT DATE: 20240101
